FAERS Safety Report 8485314-0 (Version None)
Quarter: 2012Q3

REPORT INFORMATION
  Report Type: 
  Country: None (occurrence: None)
  Receive Date: 20120703
  Receipt Date: 20120618
  Transmission Date: 20120928
  Serious: Yes (Death, Life-Threatening)
  Sender: FDA-Public Use
  Company Number: FR-ROCHE-1079294

PATIENT
  Sex: Male

DRUGS (10)
  1. ROCEPHIN [Suspect]
     Indication: PRODUCT USED FOR UNKNOWN INDICATION
     Route: 042
     Dates: start: 20120503, end: 20120510
  2. LASIX [Suspect]
     Indication: PRODUCT USED FOR UNKNOWN INDICATION
     Route: 042
     Dates: start: 20120501, end: 20120509
  3. LANSOPRAZOLE [Suspect]
     Indication: PRODUCT USED FOR UNKNOWN INDICATION
     Route: 048
     Dates: start: 20120501, end: 20120510
  4. ORBENIN CAP [Suspect]
     Indication: PRODUCT USED FOR UNKNOWN INDICATION
     Dosage: 250 MG/2.5 ML
     Route: 042
     Dates: start: 20120425, end: 20120510
  5. ORBENIN CAP [Suspect]
     Dates: start: 20120405
  6. NEXIUM [Concomitant]
     Dosage: 40 MG/DAY
     Route: 042
  7. CIPROFLOXACIN HYDROCHLORIDE [Suspect]
     Indication: PRODUCT USED FOR UNKNOWN INDICATION
     Dosage: 400 MG/200 ML
     Route: 042
     Dates: start: 20120425, end: 20120427
  8. ALBUMIN (HUMAN) [Suspect]
     Indication: PRODUCT USED FOR UNKNOWN INDICATION
     Route: 042
     Dates: start: 20120501, end: 20120509
  9. NORADRENALIN [Suspect]
     Indication: HYPOTENSION
     Route: 042
     Dates: start: 20120430
  10. GENTAMICIN [Suspect]
     Indication: PRODUCT USED FOR UNKNOWN INDICATION
     Route: 042
     Dates: start: 20120425, end: 20120425

REACTIONS (2)
  - LEUKOPENIA [None]
  - THROMBOCYTOPENIA [None]
